FAERS Safety Report 18124094 (Version 1)
Quarter: 2020Q3

REPORT INFORMATION
  Report Type: Report from Study
  Country: US (occurrence: US)
  Receive Date: 20200807
  Receipt Date: 20200807
  Transmission Date: 20201103
  Serious: Yes (Hospitalization, Other)
  Sender: FDA-Public Use
  Company Number: US-BRISTOL-MYERS SQUIBB COMPANY-BMS-2020-060581

PATIENT
  Age: 54 Year
  Sex: Female
  Weight: 61.22 kg

DRUGS (10)
  1. ABATACEPT [Suspect]
     Active Substance: ABATACEPT
     Indication: RHEUMATOID ARTHRITIS
     Dosage: UNK
     Route: 058
  2. SULFASALAZINE. [Concomitant]
     Active Substance: SULFASALAZINE
     Indication: PRODUCT USED FOR UNKNOWN INDICATION
     Route: 065
  3. HCTZ [Concomitant]
     Active Substance: HYDROCHLOROTHIAZIDE
     Indication: PRODUCT USED FOR UNKNOWN INDICATION
     Route: 065
  4. FOLIC ACID. [Concomitant]
     Active Substance: FOLIC ACID
     Indication: PRODUCT USED FOR UNKNOWN INDICATION
     Route: 065
  5. METHOTREXATE. [Concomitant]
     Active Substance: METHOTREXATE
     Indication: PRODUCT USED FOR UNKNOWN INDICATION
     Route: 065
  6. ORENCIA [Suspect]
     Active Substance: ABATACEPT
     Dosage: UNK, Q4WK
     Route: 042
  7. FOSAMAX [Concomitant]
     Active Substance: ALENDRONATE SODIUM
     Indication: PRODUCT USED FOR UNKNOWN INDICATION
     Route: 065
  8. NIFEDIPINE. [Concomitant]
     Active Substance: NIFEDIPINE
     Indication: PRODUCT USED FOR UNKNOWN INDICATION
     Route: 065
  9. PLAQUENIL [Concomitant]
     Active Substance: HYDROXYCHLOROQUINE SULFATE
     Indication: PRODUCT USED FOR UNKNOWN INDICATION
     Route: 065
  10. ORENCIA [Suspect]
     Active Substance: ABATACEPT
     Indication: RHEUMATOID ARTHRITIS
     Dosage: FIRST 3
     Route: 042
     Dates: start: 2019, end: 201910

REACTIONS (42)
  - Skull fracture [Unknown]
  - Respiratory failure [Unknown]
  - Fatigue [Unknown]
  - Glomerular filtration rate increased [Unknown]
  - Multiple injuries [Unknown]
  - Headache [Unknown]
  - Respiratory arrest [Unknown]
  - Coma [Unknown]
  - Nausea [Unknown]
  - Feeling abnormal [Unknown]
  - Hyperkalaemia [Unknown]
  - Visual impairment [Unknown]
  - Cerebrovascular accident [Unknown]
  - Somnolence [Unknown]
  - Inflammatory marker increased [Unknown]
  - Cerebral haemorrhage [Unknown]
  - Thyroid mass [Unknown]
  - Red blood cell count decreased [Unknown]
  - Facial bones fracture [Unknown]
  - Haematocrit decreased [Unknown]
  - Blood glucose increased [Unknown]
  - Blood bilirubin increased [Unknown]
  - Craniocerebral injury [Unknown]
  - Dizziness [Unknown]
  - Amnesia [Unknown]
  - Cough [Unknown]
  - Red cell distribution width increased [Unknown]
  - Blood ketone body increased [Unknown]
  - Blood creatinine decreased [Unknown]
  - Stress fracture [Unknown]
  - Pain [Unknown]
  - Scab [Unknown]
  - Haemoglobin decreased [Unknown]
  - Blood calcium decreased [Unknown]
  - Road traffic accident [Unknown]
  - Cardiac arrest [Unknown]
  - Biliary dilatation [Unknown]
  - Wheezing [Unknown]
  - Blood potassium decreased [Unknown]
  - Subarachnoid haemorrhage [Unknown]
  - Respiratory tract congestion [Unknown]
  - Loss of consciousness [Unknown]

NARRATIVE: CASE EVENT DATE: 201910
